FAERS Safety Report 8089077-2 (Version None)
Quarter: 2012Q1

REPORT INFORMATION
  Report Type: 
  Country: None (occurrence: None)
  Receive Date: 20120128
  Receipt Date: 20110707
  Transmission Date: 20120608
  Serious: No
  Sender: FDA-Public Use
  Company Number: US-ABBOTT-11P-163-0716782-00

PATIENT
  Age: 35 Year
  Sex: Female

DRUGS (18)
  1. EFFEXOR [Concomitant]
     Indication: ANXIETY
  2. VALIUM [Concomitant]
     Indication: ANXIETY
     Dosage: AS NEEDED
     Route: 048
     Dates: start: 20101001
  3. DOXEPIN [Concomitant]
     Indication: DEPRESSION
     Route: 048
     Dates: start: 20090101
  4. DOXEPIN [Concomitant]
     Indication: ANXIETY
  5. ZYPREXA [Concomitant]
     Indication: ANXIETY
  6. PROZAC [Concomitant]
     Indication: ANXIETY
  7. TOPAMAX [Concomitant]
     Indication: MIGRAINE
     Route: 048
  8. PROZAC [Concomitant]
     Indication: DEPRESSION
     Route: 048
     Dates: start: 20090101
  9. PROZAC [Concomitant]
     Indication: BIPOLAR DISORDER
  10. ZYPREXA [Concomitant]
     Indication: DEPRESSION
     Dates: start: 20101001
  11. ZYPREXA [Concomitant]
     Indication: BIPOLAR DISORDER
  12. EFFEXOR [Concomitant]
     Indication: DEPRESSION
     Route: 048
     Dates: start: 20090101
  13. ADDERALL 5 [Concomitant]
     Indication: DEPRESSION
     Dates: start: 20101001
  14. SYNTHROID [Concomitant]
     Indication: THYROIDECTOMY
     Route: 048
     Dates: start: 20060101
  15. HUMIRA [Suspect]
     Indication: PSORIASIS
     Route: 058
     Dates: start: 20110404
  16. DOXEPIN [Concomitant]
     Indication: BIPOLAR DISORDER
  17. EFFEXOR [Concomitant]
     Indication: BIPOLAR DISORDER
  18. SYNTHROID [Concomitant]
     Indication: AUTOIMMUNE THYROIDITIS

REACTIONS (3)
  - INJECTION SITE PAIN [None]
  - INJECTION SITE HAEMATOMA [None]
  - FATIGUE [None]
